FAERS Safety Report 25164021 (Version 1)
Quarter: 2025Q2

REPORT INFORMATION
  Report Type: Spontaneous
  Country: ES (occurrence: ES)
  Receive Date: 20250405
  Receipt Date: 20250405
  Transmission Date: 20250717
  Serious: Yes (Other)
  Sender: AUROBINDO
  Company Number: ES-AEMPS-1651763

PATIENT
  Age: 23 Year
  Sex: Female

DRUGS (2)
  1. BUPIVACAINE [Interacting]
     Active Substance: BUPIVACAINE
     Indication: Primary stabbing headache
     Route: 023
     Dates: start: 20211004
  2. BOTULINUM TOXIN TYPE A [Interacting]
     Active Substance: BOTULINUM TOXIN TYPE A
     Indication: Primary stabbing headache
     Route: 023
     Dates: start: 20211004

REACTIONS (2)
  - Concomitant disease aggravated [Recovered/Resolved]
  - Primary stabbing headache [Recovered/Resolved]

NARRATIVE: CASE EVENT DATE: 20250224
